FAERS Safety Report 12644973 (Version 2)
Quarter: 2019Q3

REPORT INFORMATION
  Report Type: Spontaneous
  Country: US (occurrence: US)
  Receive Date: 20160811
  Receipt Date: 20190723
  Transmission Date: 20191004
  Serious: No
  Sender: FDA-Public Use
  Company Number: US-PFIZER INC-2016379888

PATIENT
  Age: 68 Year
  Sex: Female
  Weight: 53.52 kg

DRUGS (4)
  1. CHANTIX [Suspect]
     Active Substance: VARENICLINE TARTRATE
     Indication: SMOKING CESSATION THERAPY
     Dosage: TWO PILLS TWICE A DAY
     Route: 048
     Dates: start: 201509
  2. CHANTIX [Suspect]
     Active Substance: VARENICLINE TARTRATE
     Dosage: ONE PILL TWICE A DAY
     Route: 048
     Dates: end: 201601
  3. CHANTIX [Suspect]
     Active Substance: VARENICLINE TARTRATE
     Dosage: ONE PILL DAILY
     Route: 048
  4. SYMBICORT [Concomitant]
     Active Substance: BUDESONIDE\FORMOTEROL FUMARATE DIHYDRATE
     Indication: DYSPNOEA
     Dosage: 2 DF, DAILY (2 SPRAYS PER DAY)
     Dates: end: 2016

REACTIONS (2)
  - Nausea [Recovered/Resolved]
  - Vomiting [Recovered/Resolved]

NARRATIVE: CASE EVENT DATE: 201509
